APPROVED DRUG PRODUCT: ARISTOCORT
Active Ingredient: TRIAMCINOLONE DIACETATE
Strength: 2MG/5ML
Dosage Form/Route: SYRUP;ORAL
Application: N011960 | Product #004
Applicant: ASTELLAS PHARMA US INC
Approved: Approved Prior to Jan 1, 1982 | RLD: No | RS: No | Type: DISCN